FAERS Safety Report 4936861-7 (Version None)
Quarter: 2006Q1

REPORT INFORMATION
  Report Type: 
  Country: None (occurrence: None)
  Receive Date: 20060302
  Receipt Date: 20060215
  Transmission Date: 20060701
  Serious: Yes (Other)
  Sender: FDA-Public Use
  Company Number: 2006-00341

PATIENT
  Sex: 0

DRUGS (2)
  1. VELCADE [Suspect]
     Indication: MULTIPLE MYELOMA
     Dosage: 1.30 MG/M2, 2/WEEK
  2. ZOLEDRONIC ACID (ZOLEDRONIC ACID) [Concomitant]

REACTIONS (5)
  - CUTANEOUS VASCULITIS [None]
  - DISEASE PROGRESSION [None]
  - LEUKOPENIA [None]
  - NEUROPATHY PERIPHERAL [None]
  - THROMBOCYTOPENIA [None]
